FAERS Safety Report 9521615 (Version 1)
Quarter: 2013Q3

REPORT INFORMATION
  Report Type: Spontaneous
  Country: CA (occurrence: CA)
  Receive Date: 20130913
  Receipt Date: 20130913
  Transmission Date: 20140515
  Serious: Yes (Hospitalization, Disabling)
  Sender: FDA-Public Use
  Company Number: CA-ASTRAZENECA-2013SE68018

PATIENT
  Age: 67 Year
  Sex: Female
  Weight: 82 kg

DRUGS (5)
  1. ARIMIDEX [Suspect]
     Route: 048
  2. BUDESONIDE [Concomitant]
  3. NIFEDIPINE XL [Concomitant]
  4. SALBUTAMOL [Concomitant]
  5. THEOPHYLLINE SUSTAINED RELEASED [Concomitant]

REACTIONS (6)
  - Joint contracture [Not Recovered/Not Resolved]
  - Muscular weakness [Not Recovered/Not Resolved]
  - Pain [Not Recovered/Not Resolved]
  - Myalgia [Not Recovered/Not Resolved]
  - Arthralgia [Not Recovered/Not Resolved]
  - Temperature intolerance [Not Recovered/Not Resolved]
